FAERS Safety Report 20489792 (Version 1)
Quarter: 2022Q1

REPORT INFORMATION
  Report Type: Spontaneous
  Country: DK (occurrence: DK)
  Receive Date: 20220218
  Receipt Date: 20220218
  Transmission Date: 20220423
  Serious: No
  Sender: FDA-Public Use
  Company Number: None

PATIENT
  Age: 44 Year
  Sex: Female

DRUGS (1)
  1. SOTROVIMAB [Suspect]
     Active Substance: SOTROVIMAB
     Indication: COVID-19
     Dosage: 500 MG SINGLE TOTAL (STRENGTH: 500 MG)
     Route: 042
     Dates: start: 20211121, end: 20211121

REACTIONS (5)
  - Burning sensation [Recovering/Resolving]
  - Hypersensitivity [Recovering/Resolving]
  - Rash pruritic [Recovering/Resolving]
  - Papule [Recovering/Resolving]
  - Maternal exposure during pregnancy [Recovered/Resolved]

NARRATIVE: CASE EVENT DATE: 20211125
